FAERS Safety Report 8392990-X (Version None)
Quarter: 2012Q1

REPORT INFORMATION
  Report Type: 
  Country: None (occurrence: None)
  Receive Date: 20120323
  Receipt Date: 20110714
  Transmission Date: 20120608
  Serious: Yes (Other)
  Sender: FDA-Public Use
  Company Number: 163-21880-11030407

PATIENT
  Age: 65 Year
  Sex: Male

DRUGS (15)
  1. COREG [Concomitant]
  2. HYDRALAZINE HCL [Concomitant]
  3. REVLIMID [Suspect]
     Indication: AMYLOIDOSIS
     Dosage: 15 MG, 1 IN 1 D, PO
     Route: 048
     Dates: start: 20110201, end: 20110224
  4. CRESTOR [Concomitant]
  5. COLACE (DOCUSATE SODIUM) [Concomitant]
  6. REVLIMID [Suspect]
     Indication: AMYLOIDOSIS
     Dosage: 10 MG, 1 IN 1 D, PO; 10 MG, 1 IN 1 D, PO
     Route: 048
     Dates: start: 20110101
  7. REVLIMID [Suspect]
     Indication: AMYLOIDOSIS
     Dosage: 10 MG, 1 IN 1 D, PO; 10 MG, 1 IN 1 D, PO
     Route: 048
     Dates: start: 20110607, end: 20110630
  8. LASIX [Concomitant]
  9. PHOSLO [Concomitant]
  10. DIFLUCAN [Suspect]
     Indication: PRODUCT USED FOR UNKNOWN INDICATION
     Dosage: 400 MG, QD,
     Dates: start: 20100501
  11. COUMADIN [Suspect]
     Indication: PRODUCT USED FOR UNKNOWN INDICATION
     Dosage: 2 MG,; 2.5 MG,
     Dates: end: 20110227
  12. ZOLOFT [Concomitant]
  13. CARDURA [Concomitant]
  14. DEXAMETHASONE [Concomitant]
  15. XANAX [Concomitant]

REACTIONS (1)
  - THROMBOCYTOPENIA [None]
